FAERS Safety Report 8088306-9 (Version None)
Quarter: 2012Q1

REPORT INFORMATION
  Report Type: 
  Country: None (occurrence: None)
  Receive Date: 20120128
  Receipt Date: 20110422
  Transmission Date: 20120608
  Serious: No
  Sender: FDA-Public Use
  Company Number: US-ABBOTT-11P-163-0721272-00

PATIENT
  Age: 26 Year
  Sex: Female

DRUGS (3)
  1. UNKNOWN BIRTH CONTROL PILL [Concomitant]
     Indication: CONTRACEPTION
     Dosage: 1 PILL DAILY
  2. HUMIRA [Suspect]
     Indication: CROHN'S DISEASE
     Dosage: 160 MG LOADING DOSE
     Dates: start: 20110421
  3. CYMBALTA [Concomitant]
     Indication: PRODUCT USED FOR UNKNOWN INDICATION
     Dates: start: 20101101

REACTIONS (2)
  - RHINORRHOEA [None]
  - HEADACHE [None]
